FAERS Safety Report 5228084-1 (Version None)
Quarter: 2007Q1

REPORT INFORMATION
  Report Type: 
  Country: None (occurrence: None)
  Receive Date: 20061201
  Receipt Date: 20060929
  Transmission Date: 20070707
  Serious: No
  Sender: FDA-Public Use
  Company Number: US200610000139

PATIENT
  Age: 52 Year
  Sex: Female

DRUGS (3)
  1. CYMBALTA [Suspect]
     Indication: FEELING ABNORMAL
     Dosage: 20 MG, 3/D, ORAL, 20 MG, 2/D, ORAL
     Route: 048
     Dates: start: 20060101
  2. CYMBALTA [Suspect]
     Indication: FEELING ABNORMAL
     Dosage: 20 MG, 3/D, ORAL, 20 MG, 2/D, ORAL
     Route: 048
     Dates: start: 20060701
  3. AMBIEN [Concomitant]

REACTIONS (2)
  - DEPRESSION [None]
  - HYPERHIDROSIS [None]
